FAERS Safety Report 5741364-6 (Version None)
Quarter: 2008Q2

REPORT INFORMATION
  Report Type: 
  Country: None (occurrence: None)
  Receive Date: 20080514
  Receipt Date: 20080501
  Transmission Date: 20081010
  Serious: Yes (Life-Threatening, Hospitalization)
  Sender: FDA-Public Use
  Company Number: MEDI-0006744

PATIENT
  Age: 7 Month
  Sex: Male
  Weight: 8.5 kg

DRUGS (1)
  1. SYNAGIS [Suspect]
     Indication: ANTIVIRAL PROPHYLAXIS
     Dosage: 100 MG, INTRAMUSCULAR
     Route: 030
     Dates: start: 20071019

REACTIONS (2)
  - PNEUMONIA [None]
  - RESPIRATORY SYNCYTIAL VIRUS INFECTION [None]
